FAERS Safety Report 6685074-X (Version None)
Quarter: 2010Q2

REPORT INFORMATION
  Report Type: 
  Country: None (occurrence: None)
  Receive Date: 20100416
  Receipt Date: 20100407
  Transmission Date: 20101027
  Serious: Yes (Hospitalization)
  Sender: FDA-Public Use
  Company Number: B0624284A

PATIENT
  Sex: Female

DRUGS (6)
  1. HYCAMTIN [Suspect]
     Indication: CERVIX CARCINOMA
     Dates: start: 20091113, end: 20100126
  2. CARBOPLATIN [Suspect]
     Indication: CERVIX CARCINOMA
     Dates: start: 20091113, end: 20100126
  3. ACETAMINOPHEN [Concomitant]
     Indication: ABDOMINAL PAIN
  4. SMECTA [Concomitant]
  5. LOPERAMIDE [Concomitant]
  6. GRANOCYTE [Concomitant]

REACTIONS (4)
  - ENTEROVESICAL FISTULA [None]
  - HAEMATURIA [None]
  - HAEMORRHAGE URINARY TRACT [None]
  - SEPSIS [None]
